FAERS Safety Report 24231091 (Version 2)
Quarter: 2025Q2

REPORT INFORMATION
  Report Type: Report from Study
  Country: US (occurrence: US)
  Receive Date: 20240821
  Receipt Date: 20250508
  Transmission Date: 20250717
  Serious: No
  Sender: AMGEN
  Company Number: US-AMGEN-USASP2024165317

PATIENT
  Age: 44 Year
  Sex: Male

DRUGS (1)
  1. TEPEZZA [Suspect]
     Active Substance: TEPROTUMUMAB-TRBW
     Indication: Endocrine ophthalmopathy
     Dosage: UNK UNK, Q3WK (1X EVERY 3 WEEKS FOR 8 INFUSIONS)
     Route: 042
     Dates: start: 20240417

REACTIONS (1)
  - Muscle spasms [Unknown]
